FAERS Safety Report 13713149 (Version 1)
Quarter: 2017Q3

REPORT INFORMATION
  Report Type: Spontaneous
  Country: FR (occurrence: FR)
  Receive Date: 20170704
  Receipt Date: 20170704
  Transmission Date: 20171127
  Serious: Yes (Life-Threatening, Other)
  Sender: FDA-Public Use
  Company Number: FR-BAXTER-2017BAX026390

PATIENT
  Age: 65 Year
  Sex: Female

DRUGS (29)
  1. GYDRELLE [Concomitant]
     Indication: PRODUCT USED FOR UNKNOWN INDICATION
     Route: 065
  2. ZELITREX [Concomitant]
     Active Substance: VALACYCLOVIR HYDROCHLORIDE
     Route: 048
  3. TIENAM [Concomitant]
     Active Substance: CILASTATIN SODIUM\IMIPENEM
     Indication: DIVERTICULITIS
     Route: 065
     Dates: start: 2017
  4. THYMOGLOBULINE [Suspect]
     Active Substance: LAPINE T-LYMPHOCYTE IMMUNE GLOBULIN
     Indication: ACUTE MYELOID LEUKAEMIA RECURRENT
     Dosage: POWDER FOR SOLUTION FOR INFUSION, DAY -3, SERTIC CONDITIONING THERAPY
     Route: 041
     Dates: start: 20170613, end: 20170613
  5. STILNOX [Concomitant]
     Active Substance: ZOLPIDEM TARTRATE
     Indication: INSOMNIA
     Dosage: IF INSOMNIA
     Route: 065
  6. VIT K1 [Concomitant]
     Active Substance: PHYTONADIONE
     Indication: PRODUCT USED FOR UNKNOWN INDICATION
     Route: 065
  7. PHOCYTAN [Concomitant]
     Active Substance: .ALPHA.-GLUCOSE-1-PHOSPHATE
     Indication: PRODUCT USED FOR UNKNOWN INDICATION
     Dosage: 2 AMPULES
     Route: 065
  8. LOMUSTINE. [Suspect]
     Active Substance: LOMUSTINE
     Indication: ACUTE MYELOID LEUKAEMIA
     Dosage: INDUCTION THERAPY, LAMSA
     Route: 065
     Dates: start: 201612
  9. EVOLTRA [Suspect]
     Active Substance: CLOFARABINE
     Indication: ACUTE MYELOID LEUKAEMIA RECURRENT
     Dosage: SOLUTION FOR DILUTION FOR INFUSION, SERTIC CONDITIONING THERAPY, DAY -13, DAY -12, DAY -11, DAY -10
     Route: 041
     Dates: start: 20170603, end: 20170607
  10. THYMOGLOBULINE [Suspect]
     Active Substance: LAPINE T-LYMPHOCYTE IMMUNE GLOBULIN
     Dosage: POWDER FOR SOLUTION FOR INFUSION, DAY -2, SERTIC CONDITIONING THERAPY
     Route: 041
     Dates: start: 20170614, end: 20170614
  11. TOPALGIC (FRANCE) [Concomitant]
     Active Substance: TRAMADOL
     Indication: PAIN
     Dosage: IF IN PAIN
     Route: 065
  12. INEXIUM [Concomitant]
     Active Substance: ESOMEPRAZOLE
     Indication: PRODUCT USED FOR UNKNOWN INDICATION
     Dosage: IN THE EVENING
     Route: 065
  13. CALCIUM CHLORIDE. [Concomitant]
     Active Substance: CALCIUM CHLORIDE
     Indication: PRODUCT USED FOR UNKNOWN INDICATION
     Dosage: 2 AMPULES
     Route: 065
  14. POTASSIUM CHLORIDE. [Concomitant]
     Active Substance: POTASSIUM CHLORIDE
     Indication: PRODUCT USED FOR UNKNOWN INDICATION
     Dosage: 4 G IN TOTAL WITH POLYIONIQUE G5 (GLUCOSE, SODIUM CHLORIDE AND POTASSIUM CHLORIDE)
     Route: 065
  15. CYTARABINE KABI [Suspect]
     Active Substance: CYTARABINE
     Dosage: SOLUTION FOR INJECTION OR INFUSION, SERTIC CONDITIONING THERAPY, DAY -13, DAY -12, DAY -11, DAY -10
     Route: 041
     Dates: start: 20170603, end: 20170607
  16. IDARUBICIN [Suspect]
     Active Substance: IDARUBICIN
     Indication: ACUTE MYELOID LEUKAEMIA
     Dosage: INDUCTION THERAPY, LAMSA
     Route: 065
     Dates: start: 201612
  17. CRESTOR [Concomitant]
     Active Substance: ROSUVASTATIN CALCIUM
     Indication: PRODUCT USED FOR UNKNOWN INDICATION
     Dosage: IN THE EVENING
     Route: 065
  18. CYCLOSPORINE. [Concomitant]
     Active Substance: CYCLOSPORINE
     Indication: PRODUCT USED FOR UNKNOWN INDICATION
     Dosage: IV SYRINGE DRIVER
     Route: 042
  19. TIENAM [Concomitant]
     Active Substance: CILASTATIN SODIUM\IMIPENEM
     Indication: PSEUDOMONAS INFECTION
  20. ENDOXAN 1000 MG, POUDRE POUR SOLUTION INJECTABLE [Suspect]
     Active Substance: CYCLOPHOSPHAMIDE
     Indication: ACUTE MYELOID LEUKAEMIA RECURRENT
     Dosage: SERTIC CONDITIONING THERAPY, AT DAY -5
     Route: 041
     Dates: start: 20170611, end: 20170611
  21. BUSILVEX [Suspect]
     Active Substance: BUSULFAN
     Indication: ACUTE MYELOID LEUKAEMIA RECURRENT
     Dosage: SERTIC CONDITIONING THERAPY, SOLUTION FOR DILUTION FOR INFUSION, DAY -4 AND DAY -3
     Route: 041
     Dates: start: 20170612, end: 20170613
  22. AMLOR [Concomitant]
     Active Substance: AMLODIPINE BESYLATE
     Indication: PRODUCT USED FOR UNKNOWN INDICATION
     Dosage: MORNING
     Route: 065
  23. ZELITREX [Concomitant]
     Active Substance: VALACYCLOVIR HYDROCHLORIDE
     Indication: PRODUCT USED FOR UNKNOWN INDICATION
     Route: 065
  24. CELLCEPT [Concomitant]
     Active Substance: MYCOPHENOLATE MOFETIL\MYCOPHENOLATE MOFETIL HYDROCHLORIDE
     Indication: PRODUCT USED FOR UNKNOWN INDICATION
     Route: 042
  25. CYTARABINE KABI [Suspect]
     Active Substance: CYTARABINE
     Indication: ACUTE MYELOID LEUKAEMIA RECURRENT
     Dosage: 3-REINDUCTIONS
     Route: 065
  26. IDARUBICIN [Suspect]
     Active Substance: IDARUBICIN
     Dosage: 3-REINDUCTIONS
     Route: 065
  27. CYTARABINE KABI [Suspect]
     Active Substance: CYTARABINE
     Indication: ACUTE MYELOID LEUKAEMIA
     Dosage: INDUCTION THERAPY, LAMSA
     Route: 065
     Dates: start: 201612
  28. ZOPHREN [Concomitant]
     Active Substance: ONDANSETRON
     Indication: PRODUCT USED FOR UNKNOWN INDICATION
     Route: 042
  29. VANCOMYCIN [Concomitant]
     Active Substance: VANCOMYCIN
     Indication: PARONYCHIA
     Route: 065
     Dates: start: 20170611

REACTIONS (6)
  - Atrial fibrillation [Recovering/Resolving]
  - Myocarditis [Recovering/Resolving]
  - Condition aggravated [Unknown]
  - Hepatic failure [Unknown]
  - Oliguria [Unknown]
  - Alveolar lung disease [Unknown]

NARRATIVE: CASE EVENT DATE: 201706
